FAERS Safety Report 4553841-4 (Version None)
Quarter: 2005Q1

REPORT INFORMATION
  Report Type: 
  Country: None (occurrence: None)
  Receive Date: 20050111
  Receipt Date: 20050111
  Transmission Date: 20050727
  Serious: No
  Sender: FDA-Public Use
  Company Number: None

PATIENT
  Age: 65 Year
  Sex: Female

DRUGS (1)
  1. ZOSYN [Suspect]
     Dosage: INTRAVENOUS; 3.375
     Route: 042
     Dates: start: 20041103, end: 20041104

REACTIONS (1)
  - RASH [None]
